FAERS Safety Report 20934434 (Version 6)
Quarter: 2022Q4

REPORT INFORMATION
  Report Type: Report from Study
  Country: US (occurrence: US)
  Receive Date: 20220608
  Receipt Date: 20221002
  Transmission Date: 20230113
  Serious: Yes (Other)
  Sender: FDA-Public Use
  Company Number: US-BRISTOL-MYERS SQUIBB COMPANY-2022-049422

PATIENT
  Age: 59 Year
  Sex: Female
  Weight: 104.28 kg

DRUGS (24)
  1. REVLIMID [Suspect]
     Active Substance: LENALIDOMIDE
     Indication: Plasma cell myeloma
     Dosage: DAILY 14 DAYS ON 7 DAYS OFF
     Route: 048
     Dates: start: 20220121
  2. REVLIMID [Suspect]
     Active Substance: LENALIDOMIDE
     Dosage: 14 OUT OF 21 DAYS
     Route: 048
     Dates: start: 20220121
  3. REVLIMID [Suspect]
     Active Substance: LENALIDOMIDE
     Dosage: DAILY 14 DAYS OF EVERY 21 DAYS
     Route: 048
     Dates: start: 20220121
  4. KEPPRA [Suspect]
     Active Substance: LEVETIRACETAM
     Indication: Cerebral disorder
     Route: 065
  5. VIVURAL [CALCIUM] [Concomitant]
     Indication: Product used for unknown indication
     Route: 065
  6. MIRALAX [Concomitant]
     Active Substance: POLYETHYLENE GLYCOL 3350
     Indication: Product used for unknown indication
     Route: 065
  7. DEXAM [DEXAMETHASONE] [Concomitant]
     Indication: Product used for unknown indication
     Route: 065
  8. ASPIRIN ULTRA [Concomitant]
     Indication: Product used for unknown indication
     Route: 065
  9. ESZOPICLONE [Concomitant]
     Active Substance: ESZOPICLONE
     Indication: Product used for unknown indication
     Route: 065
  10. CO RIZATRIPTAN [Concomitant]
     Indication: Product used for unknown indication
     Route: 065
  11. AQUARIUS [HYDROCHLOROTHIAZIDE] [Concomitant]
     Indication: Product used for unknown indication
     Route: 065
  12. ACYCLOVIR [Concomitant]
     Active Substance: ACYCLOVIR
     Indication: Product used for unknown indication
     Route: 065
  13. GANIN [GABAPENTIN] [Concomitant]
     Indication: Product used for unknown indication
     Route: 065
  14. ROPINIROLE HYDROCHLORIDE [Concomitant]
     Active Substance: ROPINIROLE HYDROCHLORIDE
     Indication: Product used for unknown indication
     Route: 065
  15. ANGINIB [LOSARTAN] [Concomitant]
     Indication: Product used for unknown indication
     Route: 065
  16. ZOFRON [ONDANSETRON] [Concomitant]
     Indication: Product used for unknown indication
     Route: 065
  17. MOVANTIK [Concomitant]
     Active Substance: NALOXEGOL OXALATE
     Indication: Product used for unknown indication
     Route: 065
  18. DEFENAC [DICLOFENAC SODIUM] [Concomitant]
     Indication: Product used for unknown indication
     Route: 065
  19. FIORICET [Concomitant]
     Active Substance: ACETAMINOPHEN\BUTALBITAL\CAFFEINE
     Indication: Product used for unknown indication
     Route: 065
  20. HYDROCODONE [Concomitant]
     Active Substance: HYDROCODONE
     Indication: Product used for unknown indication
     Route: 065
  21. ACETAZOLAMIDE [Concomitant]
     Active Substance: ACETAZOLAMIDE
     Indication: Product used for unknown indication
     Route: 065
  22. FIORICET [Concomitant]
     Active Substance: ACETAMINOPHEN\BUTALBITAL\CAFFEINE
     Indication: Product used for unknown indication
     Route: 065
  23. LUNESTA [Concomitant]
     Active Substance: ESZOPICLONE
     Indication: Product used for unknown indication
     Route: 065
  24. ACETAMINOPHEN\HYDROCODONE [Concomitant]
     Active Substance: ACETAMINOPHEN\HYDROCODONE
     Indication: Product used for unknown indication
     Route: 065

REACTIONS (12)
  - Back disorder [Unknown]
  - Cerebral disorder [Unknown]
  - Fracture [Recovering/Resolving]
  - Haemangioma [Unknown]
  - Off label use [Unknown]
  - Mental status changes [Unknown]
  - Anger [Unknown]
  - Anxiety [Unknown]
  - Depression [Unknown]
  - Pain [Unknown]
  - Confusional state [Unknown]
  - Spinal fracture [Unknown]
